FAERS Safety Report 9377290 (Version 3)
Quarter: 2013Q3

REPORT INFORMATION
  Report Type: Spontaneous
  Country: US (occurrence: US)
  Receive Date: 20130701
  Receipt Date: 20130823
  Transmission Date: 20140515
  Serious: Yes (Other)
  Sender: FDA-Public Use
  Company Number: US-JNJFOC-20130612921

PATIENT
  Age: 83 Year
  Sex: Male
  Weight: 71.67 kg

DRUGS (13)
  1. XARELTO [Suspect]
     Indication: THROMBOSIS PROPHYLAXIS
     Route: 048
     Dates: start: 20130411
  2. XARELTO [Suspect]
     Indication: THROMBOSIS PROPHYLAXIS
     Route: 048
     Dates: start: 201303, end: 201304
  3. VITAMIN D [Concomitant]
     Route: 065
  4. RAMIPRIL [Concomitant]
     Indication: CARDIAC DISORDER
     Route: 048
  5. LANOXIN [Concomitant]
     Indication: CARDIAC DISORDER
     Route: 048
  6. CATAPRES [Concomitant]
     Indication: BLOOD PRESSURE
     Dosage: ^TTS-3^
     Route: 065
  7. POTASSIUM [Concomitant]
     Indication: NUTRITIONAL SUPPLEMENTATION
     Route: 048
  8. ALTACE [Concomitant]
     Indication: CARDIAC DISORDER
     Route: 048
  9. HYDROCHLOROTHIAZIDE [Concomitant]
     Indication: CARDIAC DISORDER
     Route: 048
  10. LIPITOR [Concomitant]
     Indication: BLOOD CHOLESTEROL
     Route: 048
  11. DIOVAN [Concomitant]
     Indication: CARDIAC DISORDER
     Route: 048
  12. ZENITH [Concomitant]
     Route: 065
  13. VITAMIN B+C [Concomitant]
     Dosage: DAILY
     Route: 065

REACTIONS (13)
  - Respiratory arrest [Recovered/Resolved]
  - Haematochezia [Not Recovered/Not Resolved]
  - Fall [Recovered/Resolved]
  - Thrombosis [Recovered/Resolved]
  - Haemorrhage [Recovered/Resolved]
  - Contusion [Recovered/Resolved]
  - Blood count abnormal [Unknown]
  - Scratch [Recovered/Resolved]
  - Scar [Recovered/Resolved]
  - Eructation [Recovered/Resolved]
  - Vomiting [Recovered/Resolved]
  - Gait disturbance [Recovered/Resolved]
  - Scab [Recovering/Resolving]
